FAERS Safety Report 11380812 (Version 1)
Quarter: 2015Q3

REPORT INFORMATION
  Report Type: Spontaneous
  Country: US (occurrence: US)
  Receive Date: 20150814
  Receipt Date: 20150814
  Transmission Date: 20151125
  Serious: No
  Sender: FDA-Public Use
  Company Number: US-JNJFOC-20150706678

PATIENT

DRUGS (2)
  1. FAMOTIDINE. [Suspect]
     Active Substance: FAMOTIDINE
     Indication: PROPHYLAXIS
     Route: 048
  2. FAMOTIDINE. [Suspect]
     Active Substance: FAMOTIDINE
     Route: 048

REACTIONS (2)
  - Product use issue [Unknown]
  - Therapeutic response unexpected [Unknown]
